FAERS Safety Report 8219008-3 (Version None)
Quarter: 2012Q1

REPORT INFORMATION
  Report Type: 
  Country: None (occurrence: None)
  Receive Date: 20120319
  Receipt Date: 20120306
  Transmission Date: 20120608
  Serious: Yes (Hospitalization)
  Sender: FDA-Public Use
  Company Number: PL-SANOFI-AVENTIS-2012SA015638

PATIENT
  Age: 50 Year
  Sex: Female

DRUGS (3)
  1. DOCETAXEL [Suspect]
     Indication: BREAST CANCER
     Route: 042
     Dates: start: 20110901, end: 20110901
  2. DOCETAXEL [Suspect]
     Route: 042
  3. BLINDED THERAPY [Suspect]
     Indication: BREAST CANCER
     Dates: start: 20110901

REACTIONS (1)
  - PNEUMOTHORAX [None]
